FAERS Safety Report 10106466 (Version 2)
Quarter: 2014Q2

REPORT INFORMATION
  Report Type: Other
  Country: US (occurrence: US)
  Receive Date: 20140424
  Receipt Date: 20140618
  Transmission Date: 20141212
  Serious: Yes (Hospitalization, Other)
  Sender: FDA-Public Use
  Company Number: US-GSKPPD-2014GSK001748

PATIENT
  Age: 56 Year
  Sex: Male

DRUGS (6)
  1. AVANDIA [Suspect]
     Indication: DIABETES MELLITUS
     Route: 048
     Dates: start: 200108, end: 200810
  2. LIPITOR [Concomitant]
     Route: 048
  3. ASPIRIN [Concomitant]
     Route: 048
  4. NITRO-BID [Concomitant]
     Route: 048
  5. LASIX [Concomitant]
     Route: 048
  6. PLAVIX [Concomitant]
     Route: 048

REACTIONS (2)
  - Coronary arterial stent insertion [None]
  - Coronary artery disease [Recovered/Resolved]
